FAERS Safety Report 11796668 (Version 1)
Quarter: 2015Q4

REPORT INFORMATION
  Report Type: Spontaneous
  Country: None (occurrence: None)
  Receive Date: 20151202
  Receipt Date: 20151202
  Transmission Date: 20160305
  Serious: Yes (Hospitalization)
  Sender: FDA-Public Use
  Company Number: None

PATIENT
  Age: 42 Year
  Sex: Male
  Weight: 104 kg

DRUGS (3)
  1. LOSARTAN-HYDROCHLOROTHIAZIDE [Concomitant]
     Active Substance: HYDROCHLOROTHIAZIDE\LOSARTAN
  2. METFORMIN [Concomitant]
     Active Substance: METFORMIN HYDROCHLORIDE
  3. INVOKANA [Suspect]
     Active Substance: CANAGLIFLOZIN
     Indication: DIABETES MELLITUS
     Route: 048

REACTIONS (11)
  - Acetonaemia [None]
  - Treatment noncompliance [None]
  - Weight decreased [None]
  - Abdominal pain [None]
  - Flank pain [None]
  - Abdominal distension [None]
  - Flatulence [None]
  - Tachycardia [None]
  - Ketonuria [None]
  - Chest discomfort [None]
  - Metabolic acidosis [None]

NARRATIVE: CASE EVENT DATE: 20151114
